FAERS Safety Report 18717476 (Version 1)
Quarter: 2021Q1

REPORT INFORMATION
  Report Type: Spontaneous
  Country: FR (occurrence: FR)
  Receive Date: 20210108
  Receipt Date: 20210108
  Transmission Date: 20210419
  Serious: Yes (Hospitalization)
  Sender: FDA-Public Use
  Company Number: NVSC2020FR343549

PATIENT
  Age: 76 Year
  Sex: Male
  Weight: 86 kg

DRUGS (16)
  1. VALACICLOVIR [Concomitant]
     Active Substance: VALACYCLOVIR HYDROCHLORIDE
     Indication: ANTIVIRAL TREATMENT
     Dosage: 1000 MG, QD (NON RENSEIGNEE)
     Route: 048
     Dates: start: 20201006
  2. ETOPOSIDE. [Suspect]
     Active Substance: ETOPOSIDE
     Indication: B-CELL LYMPHOMA
     Dosage: 81 MG, QD (81 MG J1 (J2J3 ANNULE))
     Route: 042
     Dates: start: 20201006, end: 20201006
  3. VINCRISTINE [Suspect]
     Active Substance: VINCRISTINE
     Indication: B-CELL LYMPHOMA
     Dosage: 2 MG, CYCLIC (2 MG J1 CHAQUE CURE)
     Route: 042
     Dates: start: 20201006, end: 20201030
  4. ZOPHREN [Concomitant]
     Active Substance: ONDANSETRON
     Indication: CHEMOTHERAPY SIDE EFFECT PROPHYLAXIS
     Dosage: 8 MG,CYCLIC
     Route: 042
     Dates: start: 20201006, end: 20201030
  5. ZARZIO [Suspect]
     Active Substance: FILGRASTIM
     Indication: NEUTROPENIA
     Dosage: 1 DF, QD (1 SER/JOUR)
     Route: 058
     Dates: start: 20201011, end: 20201012
  6. DOXORUBICINE [Suspect]
     Active Substance: DOXORUBICIN
     Indication: B-CELL LYMPHOMA
     Dosage: 81 MG, CYCLIC (81 MG J1 CHAQUE CURE)
     Route: 042
     Dates: start: 20201030, end: 20201030
  7. PREDNISOLONE. [Concomitant]
     Active Substance: PREDNISOLONE
     Indication: PAIN
     Dosage: 60 MG, QD (LE MATIN)
     Route: 048
     Dates: start: 20200929
  8. OMEXEL [Concomitant]
     Active Substance: TAMSULOSIN HYDROCHLORIDE
     Indication: BENIGN PROSTATIC HYPERPLASIA
     Dosage: 0.4 MG,QD
     Route: 048
     Dates: start: 20201002
  9. PANTOPRAZOLE [Concomitant]
     Active Substance: PANTOPRAZOLE
     Indication: PEPTIC ULCER
     Dosage: 20 MG,QD
     Route: 048
     Dates: start: 20201002
  10. SPECIAFOLDINE [Concomitant]
     Active Substance: FOLIC ACID
     Indication: ANAEMIA PROPHYLAXIS
     Dosage: 0.4 MG,QD
     Route: 048
     Dates: start: 20201002
  11. SOLU?MEDROL [Concomitant]
     Active Substance: METHYLPREDNISOLONE SODIUM SUCCINATE
     Indication: ALLERGY PROPHYLAXIS
     Dosage: 64.8 MG,CYCLIC
     Route: 042
     Dates: start: 20201006, end: 20201030
  12. PARACETAMOL B. BRAUN [Concomitant]
     Active Substance: ACETAMINOPHEN
     Indication: PAIN
     Dosage: 1000 MG, CYCLIC
     Route: 042
     Dates: start: 20201006, end: 20201030
  13. ZYMAD [Concomitant]
     Active Substance: CHOLECALCIFEROL
     Indication: HYPOVITAMINOSIS
     Dosage: 1 DF, Q2W
     Route: 048
     Dates: start: 20201002
  14. ENDOXAN [Suspect]
     Active Substance: CYCLOPHOSPHAMIDE
     Indication: B-CELL LYMPHOMA
     Dosage: 1220 MG, CYCLIC (1220 MG J1 CHAQUE CURE)
     Route: 042
     Dates: start: 20201006, end: 20201030
  15. MABTHERA [Suspect]
     Active Substance: RITUXIMAB
     Indication: B-CELL LYMPHOMA
     Dosage: 610 MG, CYCLIC (610 MG J1 CHAQUE CURE)
     Route: 042
     Dates: start: 20201006, end: 20201030
  16. POLARAMINE [Concomitant]
     Active Substance: DEXCHLORPHENIRAMINE MALEATE
     Indication: ALLERGY PROPHYLAXIS
     Dosage: 5 MG, CYCLIC
     Route: 042
     Dates: start: 20201006, end: 20201030

REACTIONS (1)
  - Interstitial lung disease [Not Recovered/Not Resolved]

NARRATIVE: CASE EVENT DATE: 20201121
